FAERS Safety Report 25285515 (Version 1)
Quarter: 2025Q2

REPORT INFORMATION
  Report Type: Spontaneous
  Country: JP (occurrence: JP)
  Receive Date: 20250509
  Receipt Date: 20250509
  Transmission Date: 20250716
  Serious: Yes (Other)
  Sender: GLAXOSMITHKLINE
  Company Number: JP-GLAXOSMITHKLINE INC-JP2025JPN053564

PATIENT

DRUGS (3)
  1. BENLYSTA [Suspect]
     Active Substance: BELIMUMAB
     Indication: Systemic lupus erythematosus
  2. SAPHNELO [Concomitant]
     Active Substance: ANIFROLUMAB-FNIA
  3. PREDONINE [Concomitant]
     Active Substance: PREDNISOLONE

REACTIONS (4)
  - Mixed connective tissue disease [Unknown]
  - Autoimmune thyroiditis [Unknown]
  - Depressed mood [Unknown]
  - Discouragement [Unknown]
